FAERS Safety Report 17437593 (Version 5)
Quarter: 2020Q2

REPORT INFORMATION
  Report Type: Spontaneous
  Country: IT (occurrence: IT)
  Receive Date: 20200219
  Receipt Date: 20200508
  Transmission Date: 20200713
  Serious: Yes (Hospitalization, Other)
  Sender: FDA-Public Use
  Company Number: IT-PFIZER INC-2020062246

PATIENT
  Age: 5 Year
  Sex: Male

DRUGS (4)
  1. OMEPRAZOLE. [Interacting]
     Active Substance: OMEPRAZOLE
     Dosage: 0.8 MG/KG, 1X/DAY, INJECTED
     Route: 042
  2. PHENYTOIN SODIUM. [Suspect]
     Active Substance: PHENYTOIN SODIUM
     Indication: NERVOUS SYSTEM DISORDER PROPHYLAXIS
     Dosage: 5 MG/KG, 2X/DAY (INJECTED)
     Route: 042
  3. OMEPRAZOLE. [Interacting]
     Active Substance: OMEPRAZOLE
     Indication: HEAD INJURY
     Dosage: 1 MG/KG, 1X/DAY
     Route: 042
  4. PHENYTOIN SODIUM. [Interacting]
     Active Substance: PHENYTOIN SODIUM
     Indication: HEAD INJURY

REACTIONS (5)
  - Altered state of consciousness [Recovering/Resolving]
  - Nystagmus [Recovering/Resolving]
  - Drug level above therapeutic [Recovering/Resolving]
  - Drug interaction [Recovering/Resolving]
  - Mydriasis [Recovering/Resolving]
